FAERS Safety Report 4871967-2 (Version None)
Quarter: 2005Q4

REPORT INFORMATION
  Report Type: 
  Country: None (occurrence: None)
  Receive Date: 20051230
  Receipt Date: 20051219
  Transmission Date: 20060501
  Serious: Yes (Other)
  Sender: FDA-Public Use
  Company Number: 2005169806

PATIENT
  Age: 54 Year
  Sex: Female
  Weight: 84.369 kg

DRUGS (1)
  1. NEOSPORIN [Suspect]
     Indication: SKIN LACERATION
     Dosage: SMALL AMOUNT 3 TIMES DAILY, TOPICAL
     Route: 061
     Dates: start: 20051216, end: 20051218

REACTIONS (1)
  - DRUG HYPERSENSITIVITY [None]
